FAERS Safety Report 19562814 (Version 4)
Quarter: 2021Q3

REPORT INFORMATION
  Report Type: Report from Study
  Country: IN (occurrence: IN)
  Receive Date: 20210716
  Receipt Date: 20210823
  Transmission Date: 20211014
  Serious: Yes (Life-Threatening, Hospitalization, Other)
  Sender: FDA-Public Use
  Company Number: IN-CIPLA (EU) LIMITED-2021IN04873

PATIENT

DRUGS (2)
  1. ESOMEPRAZOLE. [Suspect]
     Active Substance: ESOMEPRAZOLE MAGNESIUM
     Indication: DRUG LEVEL
     Dosage: 10 MILLIGRAM, QD, (PERIOD 1, TEST DOSE )
     Route: 048
     Dates: start: 20210618, end: 20210618
  2. NEXIUM [Suspect]
     Active Substance: ESOMEPRAZOLE MAGNESIUM
     Indication: DRUG LEVEL
     Dosage: 10 MILLIGRAM, QD (PERIOD 2)
     Route: 048
     Dates: start: 20210626, end: 20210626

REACTIONS (11)
  - Hyperhidrosis [Recovering/Resolving]
  - Chest discomfort [Recovering/Resolving]
  - Chest pain [Recovering/Resolving]
  - Angina unstable [Unknown]
  - Pyrexia [Recovering/Resolving]
  - Ejection fraction decreased [Unknown]
  - Coronary artery disease [Unknown]
  - Dyspnoea exertional [Recovering/Resolving]
  - Myocardial ischaemia [Recovered/Resolved]
  - Acute coronary syndrome [Unknown]
  - Acute myocardial infarction [Unknown]

NARRATIVE: CASE EVENT DATE: 20210627
